FAERS Safety Report 8812043 (Version 2)
Quarter: 2012Q4

REPORT INFORMATION
  Report Type: Spontaneous
  Country: GB (occurrence: None)
  Receive Date: 20120924
  Receipt Date: 20120927
  Transmission Date: 20130627
  Serious: Yes (Other)
  Sender: FDA-Public Use
  Company Number: 2012033416

PATIENT
  Age: 31 Year
  Sex: Female

DRUGS (4)
  1. PRIVIGEN (IMMUNE GLOBULIN INTRAVENOUS (HUMAN) 10% LIQUID) [Suspect]
     Indication: FERTILITY FEMALE DECREASED
     Dosage: 25 mg QD, One off treatment of 25mg, rate of infusion: 50 mg/hr for 1st half hour, then 80mg/hr
     Route: 042
     Dates: start: 20120917, end: 20120917
  2. PARACETAMOL (PARACETAMOL) [Concomitant]
  3. HYDROCORTISONE (HYDROCORTISONE) [Concomitant]
  4. PIRITON (CHLORPHENAMINE MALEATE) [Concomitant]

REACTIONS (3)
  - Malaise [None]
  - Infusion related reaction [None]
  - Blood pressure decreased [None]
